FAERS Safety Report 8592914 (Version 2)
Quarter: 2013Q3

REPORT INFORMATION
  Report Type: Spontaneous
  Country: US (occurrence: US)
  Receive Date: 20120604
  Receipt Date: 20130726
  Transmission Date: 20140515
  Serious: No
  Sender: FDA-Public Use
  Company Number: US-ASTRAZENECA-2012SE34660

PATIENT
  Age: 29 Year
  Sex: Female

DRUGS (6)
  1. NEXIUM [Suspect]
     Route: 048
  2. PRILOSEC [Suspect]
     Route: 048
  3. PEPCID [Concomitant]
  4. TUMS [Concomitant]
  5. ROLAIDS [Concomitant]
  6. MYLANTA [Concomitant]
     Dosage: AS NEEDED

REACTIONS (6)
  - Osteoporosis [Unknown]
  - Accident [Unknown]
  - Multiple fractures [Unknown]
  - Ankle fracture [Unknown]
  - Lower limb fracture [Unknown]
  - Dermatitis allergic [Unknown]
